FAERS Safety Report 23662456 (Version 1)
Quarter: 2024Q1

REPORT INFORMATION
  Report Type: Spontaneous
  Country: JP (occurrence: JP)
  Receive Date: 20240322
  Receipt Date: 20240322
  Transmission Date: 20240410
  Serious: Yes (Other)
  Sender: FDA-Public Use
  Company Number: JP-TAIHO-2024-001844

PATIENT
  Age: 9 Decade

DRUGS (4)
  1. ABRAXANE [Suspect]
     Active Substance: PACLITAXEL
     Indication: Lung neoplasm malignant
     Dosage: NI, 1 CYCLE
     Route: 041
  2. ABRAXANE [Suspect]
     Active Substance: PACLITAXEL
     Dosage: NI, AT A REDUCED DOSE, CYCLE 2
     Route: 041
  3. CARBOPLATIN [Concomitant]
     Active Substance: CARBOPLATIN
     Indication: Lung neoplasm malignant
     Dosage: NI, AT A REDUCED DOSE, CYCLE 2
  4. CARBOPLATIN [Concomitant]
     Active Substance: CARBOPLATIN
     Dosage: NI, CYCLE 1

REACTIONS (3)
  - Axonal neuropathy [Unknown]
  - Rash [Recovered/Resolved]
  - Spinal stenosis [Recovering/Resolving]
